FAERS Safety Report 5373903-1 (Version None)
Quarter: 2007Q2

REPORT INFORMATION
  Report Type: 
  Country: None (occurrence: None)
  Receive Date: 20070628
  Receipt Date: 20070616
  Transmission Date: 20071010
  Serious: Yes (Life-Threatening, Other)
  Sender: FDA-Public Use
  Company Number: US-PFIZER INC-2007050466

PATIENT
  Age: 73 Year
  Sex: Female

DRUGS (10)
  1. CHANTIX [Suspect]
     Indication: SMOKING CESSATION THERAPY
  2. ALBUTEROL [Concomitant]
  3. XANAX [Concomitant]
  4. COREG [Concomitant]
  5. DUONEB [Concomitant]
  6. NEXIUM [Concomitant]
  7. ISOSORBIDE MONONITRATE [Concomitant]
  8. TRAMADOL HCL [Concomitant]
  9. HYDROCODONE POLISTIREX [Concomitant]
  10. CHLORPHENIRAMINE POLISTIREX [Concomitant]

REACTIONS (1)
  - SMALL CELL LUNG CANCER STAGE UNSPECIFIED [None]
